FAERS Safety Report 15527159 (Version 1)
Quarter: 2018Q4

REPORT INFORMATION
  Report Type: Spontaneous
  Country: HU (occurrence: HU)
  Receive Date: 20181018
  Receipt Date: 20181018
  Transmission Date: 20190205
  Serious: Yes (Other)
  Sender: FDA-Public Use
  Company Number: HU-MYLANLABS-2018M1076784

PATIENT
  Age: 55 Year
  Sex: Male

DRUGS (2)
  1. AMLODIPINE [Suspect]
     Active Substance: AMLODIPINE BESYLATE
     Route: 065
  2. AMLODIPINE [Suspect]
     Active Substance: AMLODIPINE BESYLATE
     Indication: HYPERTENSION
     Dosage: ADMINISTERED FOR 10 YEARS
     Route: 065

REACTIONS (3)
  - Gingival hypertrophy [Recovered/Resolved]
  - Breath odour [Recovered/Resolved]
  - Impaired quality of life [Recovered/Resolved]
